FAERS Safety Report 18451277 (Version 1)
Quarter: 2020Q4

REPORT INFORMATION
  Report Type: Spontaneous
  Country: US (occurrence: US)
  Receive Date: 20201102
  Receipt Date: 20201102
  Transmission Date: 20210114
  Serious: Yes (Hospitalization, Other)
  Sender: FDA-Public Use
  Company Number: US-SCIEGEN-2020SCILIT00365

PATIENT
  Age: 54 Year
  Sex: Male

DRUGS (9)
  1. INTRAVENOUS IMMUNOGLOBULIN [Interacting]
     Active Substance: HUMAN IMMUNOGLOBULIN G
     Indication: MYOPATHY
     Route: 042
  2. METHYLPREDNISOLONE. [Interacting]
     Active Substance: METHYLPREDNISOLONE
     Indication: MYOPATHY
     Route: 042
  3. CLOPIDOGREL [Interacting]
     Active Substance: CLOPIDOGREL BISULFATE
     Indication: CORONARY ARTERIAL STENT INSERTION
     Route: 065
  4. TICAGRELOR. [Interacting]
     Active Substance: TICAGRELOR
     Indication: CORONARY ARTERIAL STENT INSERTION
     Route: 065
  5. RITUXIMAB. [Interacting]
     Active Substance: RITUXIMAB
     Indication: MYOPATHY
     Route: 065
  6. ATORVASTATIN CALCIUM. [Suspect]
     Active Substance: ATORVASTATIN CALCIUM
     Indication: CORONARY ARTERIAL STENT INSERTION
     Route: 065
  7. PREDNISONE. [Interacting]
     Active Substance: PREDNISONE
     Indication: MUSCLE NECROSIS
     Route: 065
  8. METOPROLOL. [Interacting]
     Active Substance: METOPROLOL
     Indication: CORONARY ARTERIAL STENT INSERTION
     Route: 065
  9. CORTICOSTEROID NOS [Interacting]
     Active Substance: CORTICOSTEROID NOS
     Indication: MYOPATHY
     Route: 048

REACTIONS (3)
  - Transaminases increased [Recovering/Resolving]
  - Myopathy [Recovering/Resolving]
  - Muscle necrosis [Recovering/Resolving]
